FAERS Safety Report 4430735-6 (Version None)
Quarter: 2004Q3

REPORT INFORMATION
  Report Type: 
  Country: None (occurrence: None)
  Receive Date: 20040819
  Receipt Date: 20040819
  Transmission Date: 20050211
  Serious: No
  Sender: FDA-Public Use
  Company Number: None

PATIENT
  Age: 35 Year
  Sex: Female
  Weight: 61.2356 kg

DRUGS (1)
  1. AVELOX [Suspect]
     Indication: PHARYNGITIS STREPTOCOCCAL
     Dosage: 400 MG IX ORAL
     Route: 048
     Dates: start: 20040815, end: 20040816

REACTIONS (5)
  - CHEST PAIN [None]
  - DYSPNOEA [None]
  - HEADACHE [None]
  - SKIN BURNING SENSATION [None]
  - URTICARIA [None]
